FAERS Safety Report 4318653-5 (Version None)
Quarter: 2004Q1

REPORT INFORMATION
  Report Type: 
  Country: None (occurrence: None)
  Receive Date: 20040315
  Receipt Date: 20040301
  Transmission Date: 20041129
  Serious: Yes (Life-Threatening, Hospitalization)
  Sender: FDA-Public Use
  Company Number: 04P-062-0251662-00

PATIENT
  Age: 72 Year
  Sex: Male
  Weight: 64 kg

DRUGS (1)
  1. BIAXIN [Suspect]
     Indication: PNEUMONIA
     Dosage: 250 MG, 2 IN 1 D, PER ORAL
     Route: 048
     Dates: start: 20040218, end: 20040220

REACTIONS (4)
  - HEPATIC FAILURE [None]
  - HYPOVENTILATION [None]
  - PNEUMONIA [None]
  - SOMNOLENCE [None]
